FAERS Safety Report 5336775-7 (Version None)
Quarter: 2007Q2

REPORT INFORMATION
  Report Type: 
  Country: None (occurrence: None)
  Receive Date: 20070529
  Receipt Date: 20070521
  Transmission Date: 20071010
  Serious: Yes (Other)
  Sender: FDA-Public Use
  Company Number: PHNU2007DE01352

PATIENT
  Age: 75 Year
  Sex: Female

DRUGS (7)
  1. ZOMETA [Suspect]
     Indication: METASTASES TO BONE
     Dosage: 4 MG, QMO
     Route: 042
     Dates: start: 20040801, end: 20061207
  2. ANASTROZOLE [Concomitant]
     Dates: start: 20050401
  3. TAVANIC [Concomitant]
     Dosage: 500 MG/DAY
     Route: 065
     Dates: start: 20050702, end: 20050704
  4. TAVANIC [Concomitant]
     Dosage: 250 MG/DAY
     Route: 065
     Dates: start: 20050705, end: 20050706
  5. TAXOTERE [Concomitant]
     Indication: BREAST CANCER
     Dosage: 5 CYCLES EVERY 3 WEEKS
     Dates: start: 20041201
  6. TRASTUZUMAB [Concomitant]
     Dosage: 6 MG/MA? BODY SURFACE TIW
     Dates: start: 20060301
  7. TRASTUZUMAB [Concomitant]
     Dosage: UNK, UNK
     Dates: start: 20040801, end: 20060314

REACTIONS (9)
  - DYSPNOEA [None]
  - HYPOKALAEMIA [None]
  - JAW DISORDER [None]
  - MALIGNANT PLEURAL EFFUSION [None]
  - ORAL SURGERY [None]
  - OSTEONECROSIS [None]
  - PLEURODESIS [None]
  - POLYNEUROPATHY TOXIC [None]
  - THORACIC CAVITY DRAINAGE [None]
